FAERS Safety Report 12501564 (Version 3)
Quarter: 2020Q4

REPORT INFORMATION
  Report Type: Spontaneous
  Country: CA (occurrence: CA)
  Receive Date: 20160627
  Receipt Date: 20201126
  Transmission Date: 20210113
  Serious: Yes (Other)
  Sender: FDA-Public Use
  Company Number: CA-DSJP-DSJ-2016-120890

PATIENT
  Age: 53 Year
  Sex: Female
  Weight: 62 kg

DRUGS (4)
  1. IOHEXOL [Suspect]
     Active Substance: IOHEXOL
     Indication: DIAGNOSTIC PROCEDURE
  2. OLMESARTAN MEDOXOMIL; HYDROCHLOROTHIAZIDE [Suspect]
     Active Substance: HYDROCHLOROTHIAZIDE\OLMESARTAN MEDOXOMIL
     Indication: HYPERTENSION
     Dosage: UNK
     Route: 048
     Dates: start: 20160613, end: 20160613
  3. IOHEXOL [Suspect]
     Active Substance: IOHEXOL
     Indication: COMPUTERISED TOMOGRAM
  4. IOHEXOL [Suspect]
     Active Substance: IOHEXOL
     Indication: NECK MASS
     Dosage: 105 ML, TOTAL (105 ML (105 ML, - 2), ONCE; STRENGTH: 30000 MG/DL||ONCE)
     Route: 042
     Dates: start: 20160613, end: 20160613

REACTIONS (3)
  - Paraesthesia oral [Recovered/Resolved]
  - Throat irritation [Recovered/Resolved]
  - Urticaria [Recovered/Resolved]

NARRATIVE: CASE EVENT DATE: 20160613
